FAERS Safety Report 6980985-X (Version None)
Quarter: 2010Q3

REPORT INFORMATION
  Report Type: 
  Country: None (occurrence: None)
  Receive Date: 20100914
  Receipt Date: 20100906
  Transmission Date: 20110219
  Serious: Yes (Hospitalization)
  Sender: FDA-Public Use
  Company Number: B0669471A

PATIENT
  Sex: Female

DRUGS (2)
  1. AMOXICILLIN TRIHYDRATE + POTASSIUM CLAVULANATE [Suspect]
     Indication: URINARY TRACT INFECTION
     Route: 065
     Dates: start: 20100706, end: 20100711
  2. LEVLEN 28 [Concomitant]
     Indication: ORAL CONTRACEPTION
     Route: 065

REACTIONS (2)
  - ERYTHEMA MULTIFORME [None]
  - MOUTH ULCERATION [None]
